FAERS Safety Report 24403786 (Version 2)
Quarter: 2025Q4

REPORT INFORMATION
  Report Type: Spontaneous
  Country: US (occurrence: US)
  Receive Date: 20241007
  Receipt Date: 20251006
  Transmission Date: 20260117
  Serious: No
  Sender: RANBAXY
  Company Number: US-SUN PHARMACEUTICAL INDUSTRIES LTD-2024R1-453319

PATIENT
  Sex: Female

DRUGS (3)
  1. CEQUA [Suspect]
     Active Substance: CYCLOSPORINE
     Indication: Dry eye
     Dosage: UNK UNK, BID
     Route: 065
     Dates: start: 2023
  2. CEQUA [Suspect]
     Active Substance: CYCLOSPORINE
     Dosage: UNK (TWICE DAILY (ONCE IN THE MORNING, ONCE IN THE EVENING).
     Route: 065
     Dates: start: 202409
  3. TYLENOL [Concomitant]
     Active Substance: ACETAMINOPHEN
     Indication: Pain
     Dosage: UNK
     Route: 065

REACTIONS (6)
  - Expired product administered [Unknown]
  - Multiple use of single-use product [Unknown]
  - Vision blurred [Unknown]
  - Eye irritation [Unknown]
  - Product storage error [Unknown]
  - Drug ineffective [Unknown]
